FAERS Safety Report 9607757 (Version 2)
Quarter: 2014Q2

REPORT INFORMATION
  Report Type: Spontaneous
  Country: US (occurrence: US)
  Receive Date: 20131009
  Receipt Date: 20140619
  Transmission Date: 20141212
  Serious: No
  Sender: FDA-Public Use
  Company Number: US-BAYER-2013-121185

PATIENT
  Age: 29 Year
  Sex: Female
  Weight: 71.66 kg

DRUGS (1)
  1. MIRENA [Suspect]
     Indication: CONTRACEPTION
     Dosage: 20 MCG/24HR, CONT
     Route: 015
     Dates: start: 20130722, end: 20131003

REACTIONS (2)
  - Pregnancy with contraceptive device [None]
  - Medication error [None]
